FAERS Safety Report 21258391 (Version 3)
Quarter: 2022Q4

REPORT INFORMATION
  Report Type: Spontaneous
  Country: US (occurrence: US)
  Receive Date: 20220826
  Receipt Date: 20221021
  Transmission Date: 20230112
  Serious: Yes (Hospitalization, Other)
  Sender: FDA-Public Use
  Company Number: US-PFIZER INC-PV202200032115

PATIENT
  Age: 58 Year
  Sex: Female

DRUGS (1)
  1. XELJANZ XR [Suspect]
     Active Substance: TOFACITINIB CITRATE
     Dosage: 11 MG
     Dates: start: 2022

REACTIONS (8)
  - Pancreatitis [Unknown]
  - Liver function test increased [Unknown]
  - Mobility decreased [Unknown]
  - Increased tendency to bruise [Unknown]
  - Contusion [Unknown]
  - Condition aggravated [Unknown]
  - Diarrhoea [Recovered/Resolved]
  - Abdominal pain upper [Unknown]

NARRATIVE: CASE EVENT DATE: 20220101
